FAERS Safety Report 6149332-X (Version None)
Quarter: 2009Q2

REPORT INFORMATION
  Report Type: 
  Country: None (occurrence: None)
  Receive Date: 20090406
  Receipt Date: 20090406
  Transmission Date: 20091009
  Serious: No
  Sender: FDA-Public Use
  Company Number: None

PATIENT
  Age: 26 Year
  Sex: Male
  Weight: 82 kg

DRUGS (1)
  1. ETOPOSIDE [Suspect]
     Indication: HODGKIN'S DISEASE
     Dosage: 200 MG Q12H IV DRIP
     Route: 041
     Dates: start: 20090304, end: 20090309

REACTIONS (2)
  - DYSPNOEA [None]
  - RASH ERYTHEMATOUS [None]
